FAERS Safety Report 15298526 (Version 1)
Quarter: 2018Q3

REPORT INFORMATION
  Report Type: Spontaneous
  Country: FR (occurrence: FR)
  Receive Date: 20180820
  Receipt Date: 20180820
  Transmission Date: 20181010
  Serious: Yes (Hospitalization, Other)
  Sender: FDA-Public Use
  Company Number: FR-PURDUE PHARMA-GBR-2016-0042670

PATIENT
  Age: 85 Year
  Sex: Female

DRUGS (14)
  1. SERETIDE [Concomitant]
     Active Substance: FLUTICASONE PROPIONATE\SALMETEROL XINAFOATE
  2. TAHOR [Concomitant]
     Active Substance: ATORVASTATIN CALCIUM
  3. OXYCODONE [Suspect]
     Active Substance: OXYCODONE
     Indication: BACK PAIN
     Dosage: 20 MG, DAILY
     Route: 048
     Dates: start: 20160708, end: 20160709
  4. KAYEXALATE [Concomitant]
     Active Substance: SODIUM POLYSTYRENE SULFONATE
  5. PANTOPRAZOLE [Concomitant]
     Active Substance: PANTOPRAZOLE
  6. OXYNORMORO [Suspect]
     Active Substance: OXYCODONE HYDROCHLORIDE
     Indication: BACK PAIN
     Dosage: 10 MG, DAILY
     Route: 048
     Dates: start: 20160708, end: 20160709
  7. EUPHYLLINE L.A. [Concomitant]
     Active Substance: THEOPHYLLINE ANHYDROUS
  8. NEBIVOLOLO EG [Concomitant]
  9. PRIMPERAN [Concomitant]
     Active Substance: METOCLOPRAMIDE HYDROCHLORIDE
  10. CALCIDOSE VITAMINE D [Concomitant]
     Active Substance: CALCIUM\CHOLECALCIFEROL
  11. LASILIX                            /00032601/ [Concomitant]
     Active Substance: FUROSEMIDE
  12. RAMIPRIL. [Concomitant]
     Active Substance: RAMIPRIL
  13. CALCIPARINE [Concomitant]
     Active Substance: HEPARIN CALCIUM
  14. SPECIAFOLDINE [Concomitant]
     Active Substance: FOLIC ACID

REACTIONS (3)
  - Acute kidney injury [Unknown]
  - Somnolence [Recovered/Resolved]
  - Respiratory depression [Recovered/Resolved]

NARRATIVE: CASE EVENT DATE: 20160709
